FAERS Safety Report 4432954-1 (Version None)
Quarter: 2004Q3

REPORT INFORMATION
  Report Type: 
  Country: None (occurrence: None)
  Receive Date: 20040823
  Receipt Date: 20040809
  Transmission Date: 20050211
  Serious: Yes (Hospitalization)
  Sender: FDA-Public Use
  Company Number: ZANA001333

PATIENT
  Age: 71 Year
  Sex: Female

DRUGS (10)
  1. ZANAFLEX [Suspect]
     Indication: MULTIPLE SCLEROSIS
     Dosage: 6 MG ORAL
     Route: 048
     Dates: start: 20040528, end: 20040716
  2. BACLOFEN [Concomitant]
  3. RANITIDINE [Concomitant]
  4. ACETAMINOPHEN [Concomitant]
  5. ATORVASTATIN CALCIUM [Concomitant]
  6. OXYBUTYNIN (OXYBUTYNIN) [Concomitant]
  7. AMITRIPTYLINE HCL [Concomitant]
  8. WARFARIN (WARFARIN) [Concomitant]
  9. ZOPICLONE (ZOPICLONE) [Concomitant]
  10. CARBAMAZEPINE [Concomitant]

REACTIONS (1)
  - HOSPITALISATION [None]
